FAERS Safety Report 13261767 (Version 1)
Quarter: 2017Q1

REPORT INFORMATION
  Report Type: Report from Study
  Country: None (occurrence: GR)
  Receive Date: 20170222
  Receipt Date: 20170222
  Transmission Date: 20170428
  Serious: Yes (Death)
  Sender: FDA-Public Use
  Company Number: GR-ABBVIE-17P-066-1879286-00

PATIENT
  Sex: Female

DRUGS (5)
  1. XANAX [Concomitant]
     Active Substance: ALPRAZOLAM
     Indication: SLEEP DISORDER
  2. XANAX [Concomitant]
     Active Substance: ALPRAZOLAM
     Indication: ANXIETY
     Route: 048
  3. DUODOPA [Suspect]
     Active Substance: CARBIDOPA\LEVODOPA
     Indication: PARKINSON^S DISEASE
     Dosage: MORNING DOSE: 5.9ML; CONTINUOUS RATE: 1.2ML/H; EXTRA DOSE: 0.4ML
     Route: 050
     Dates: start: 20120701
  4. SEROPRAM [Concomitant]
     Active Substance: CITALOPRAM HYDROBROMIDE
     Indication: DEPRESSION
     Route: 048
  5. PLENDIL [Concomitant]
     Active Substance: FELODIPINE
     Indication: HYPERTENSION
     Route: 048

REACTIONS (1)
  - Cardiac failure [Fatal]
